FAERS Safety Report 8095024-X (Version None)
Quarter: 2012Q1

REPORT INFORMATION
  Report Type: 
  Country: None (occurrence: None)
  Receive Date: 20120131
  Receipt Date: 20120131
  Transmission Date: 20120608
  Serious: Yes (Hospitalization)
  Sender: FDA-Public Use
  Company Number: None

PATIENT
  Sex: Male
  Weight: 101.6 kg

DRUGS (1)
  1. GAMMAGARD [Suspect]
     Indication: IMMUNOGLOBULINS DECREASED
     Dosage: 48 GRAMS
     Route: 041

REACTIONS (6)
  - ANXIETY [None]
  - FEELING COLD [None]
  - DYSPNOEA [None]
  - FLUSHING [None]
  - BLOOD PRESSURE DECREASED [None]
  - CHILLS [None]
